FAERS Safety Report 14611393 (Version 3)
Quarter: 2018Q2

REPORT INFORMATION
  Report Type: Report from Study
  Country: US (occurrence: US)
  Receive Date: 20180308
  Receipt Date: 20180510
  Transmission Date: 20180711
  Serious: Yes (Hospitalization, Other)
  Sender: FDA-Public Use
  Company Number: US-GILEAD-2018-0324472

PATIENT
  Age: 58 Year
  Sex: Female

DRUGS (12)
  1. WARFARIN [Concomitant]
     Active Substance: WARFARIN
  2. CETIRIZINE [Concomitant]
     Active Substance: CETIRIZINE HYDROCHLORIDE
  3. LIDOCAINE. [Concomitant]
     Active Substance: LIDOCAINE
  4. AMBRISENTAN [Suspect]
     Active Substance: AMBRISENTAN
     Indication: PULMONARY ARTERIAL HYPERTENSION
     Dosage: 10 MG, QD
     Route: 048
     Dates: start: 200905
  5. DIPHENDRAMINE EXPECTORANT [Concomitant]
  6. MAALOX ANTACID [Concomitant]
     Active Substance: ALUMINUM HYDROXIDE\DIMETHICONE\MAGNESIUM HYDROXIDE
  7. FLONASE                            /00908302/ [Concomitant]
     Active Substance: MOMETASONE FUROATE
  8. VITAMIN D3 [Concomitant]
     Active Substance: CHOLECALCIFEROL
  9. FAMOTIDINE. [Concomitant]
     Active Substance: FAMOTIDINE
  10. ALLOPURINOL. [Concomitant]
     Active Substance: ALLOPURINOL
  11. GABAPENTIN. [Concomitant]
     Active Substance: GABAPENTIN
  12. MOUTH WASH [Concomitant]

REACTIONS (8)
  - Dyspnoea [Unknown]
  - Pleural effusion [Unknown]
  - Acute respiratory failure [Unknown]
  - Laryngitis [Unknown]
  - Pyrexia [Unknown]
  - Marginal zone lymphoma [Unknown]
  - Pneumonia [Unknown]
  - Pyrexia [Unknown]

NARRATIVE: CASE EVENT DATE: 20180322
